FAERS Safety Report 9825499 (Version 1)
Quarter: 2014Q1

REPORT INFORMATION
  Report Type: Spontaneous
  Country: US (occurrence: None)
  Receive Date: 20140115
  Receipt Date: 20140115
  Transmission Date: 20141002
  Serious: Yes (Other)
  Sender: FDA-Public Use
  Company Number: None

PATIENT
  Age: 2 Year
  Sex: Male
  Weight: 12.13 kg

DRUGS (1)
  1. PREDNISOLONE [Suspect]
     Indication: ASTHMA
     Route: 048
     Dates: start: 20130906, end: 20130911

REACTIONS (3)
  - Anger [None]
  - Aggression [None]
  - Product substitution issue [None]
